FAERS Safety Report 11215627 (Version 2)
Quarter: 2015Q3

REPORT INFORMATION
  Report Type: Spontaneous
  Country: US (occurrence: US)
  Receive Date: 20150624
  Receipt Date: 20150701
  Transmission Date: 20151125
  Serious: No
  Sender: FDA-Public Use
  Company Number: US-TAKEDA-2015TUS008015

PATIENT
  Age: 38 Year
  Sex: Female
  Weight: 75.28 kg

DRUGS (6)
  1. BRINTELLIX [Suspect]
     Active Substance: VORTIOXETINE HYDROBROMIDE
     Indication: DISSOCIATIVE IDENTITY DISORDER
     Dosage: 20 MG, QD
     Route: 048
     Dates: start: 2015, end: 2015
  2. BUTABARBITAL [Concomitant]
     Active Substance: BUTABARBITAL
     Indication: MIGRAINE
     Dosage: 1-2 , Q4HR, PRN
     Route: 048
     Dates: start: 2015
  3. XANAX [Concomitant]
     Active Substance: ALPRAZOLAM
     Indication: GENERALISED ANXIETY DISORDER
     Dosage: 0.5 MG, QD, PRN
     Route: 048
     Dates: start: 2012
  4. BRINTELLIX [Suspect]
     Active Substance: VORTIOXETINE HYDROBROMIDE
     Indication: GENERALISED ANXIETY DISORDER
     Dosage: 10 MG, QD
     Route: 048
     Dates: start: 2015, end: 2015
  5. BRINTELLIX [Suspect]
     Active Substance: VORTIOXETINE HYDROBROMIDE
     Dosage: 10 MG, QD
     Route: 048
     Dates: start: 2015
  6. BRINTELLIX [Suspect]
     Active Substance: VORTIOXETINE HYDROBROMIDE
     Indication: MAJOR DEPRESSION
     Dosage: 5 MG, QD
     Route: 048
     Dates: start: 20150417

REACTIONS (3)
  - Muscle rigidity [Recovered/Resolved]
  - Swelling [Recovered/Resolved]
  - Product use issue [Not Recovered/Not Resolved]

NARRATIVE: CASE EVENT DATE: 20150417
